FAERS Safety Report 9918396 (Version 1)
Quarter: 2014Q1

REPORT INFORMATION
  Report Type: Spontaneous
  Country: US (occurrence: US)
  Receive Date: 20140224
  Receipt Date: 20140224
  Transmission Date: 20141002
  Serious: No
  Sender: FDA-Public Use
  Company Number: US-BIOGENIDEC-2014BI017001

PATIENT
  Age: 26 Year
  Sex: Female
  Weight: 98 kg

DRUGS (19)
  1. TYSABRI [Suspect]
     Indication: MULTIPLE SCLEROSIS
     Route: 042
     Dates: start: 20090327, end: 20130524
  2. AVONEX [Concomitant]
     Indication: MULTIPLE SCLEROSIS
     Route: 030
     Dates: start: 20080926
  3. AVONEX [Concomitant]
     Indication: MULTIPLE SCLEROSIS
     Route: 030
     Dates: start: 20090401
  4. AMPHETAMINE-DEXTROAMPHETAMINE [Concomitant]
  5. GADOTERIDOL [Concomitant]
  6. BENADRYL [Concomitant]
     Route: 042
  7. ARICEPT [Concomitant]
     Route: 048
  8. MIRTAZAPINE [Concomitant]
     Route: 048
  9. ROPINIROLE [Concomitant]
     Route: 048
  10. LORAZEPAM [Concomitant]
     Route: 048
  11. VINPOCETINE [Concomitant]
  12. IBUPROFEN [Concomitant]
     Route: 048
  13. NORGESTIMATE [Concomitant]
     Route: 048
  14. VIT D3 [Concomitant]
     Route: 048
  15. MULTIVITAMIN [Concomitant]
     Route: 048
  16. HYDROCHLOROTHIAZIDE [Concomitant]
     Route: 048
  17. LOMOTIL [Concomitant]
  18. MIRAPEX [Concomitant]
     Route: 048
  19. REMERON [Concomitant]
     Route: 048

REACTIONS (1)
  - Tendon pain [Unknown]
